FAERS Safety Report 7434339-2 (Version None)
Quarter: 2011Q2

REPORT INFORMATION
  Report Type: 
  Country: None (occurrence: None)
  Receive Date: 20110425
  Receipt Date: 20110420
  Transmission Date: 20111010
  Serious: No
  Sender: FDA-Public Use
  Company Number: US-PFIZER INC-2011087006

PATIENT
  Sex: Female
  Weight: 68.027 kg

DRUGS (2)
  1. LEVOXYL [Concomitant]
     Indication: THYROID DISORDER
     Dosage: 50 UG, 1X/DAY
     Route: 048
  2. XALATAN [Suspect]
     Indication: CATARACT OPERATION
     Dosage: 1 GTT IN EACH EYE, 1X/DAY
     Route: 047

REACTIONS (1)
  - EYE IRRITATION [None]
